FAERS Safety Report 16399105 (Version 1)
Quarter: 2019Q2

REPORT INFORMATION
  Report Type: Spontaneous
  Country: US (occurrence: US)
  Receive Date: 20190501
  Receipt Date: 20190501
  Transmission Date: 20190711
  Serious: Yes (Life-Threatening)
  Sender: FDA-Public Use
  Company Number: None

PATIENT
  Age: 64 Year
  Sex: Male

DRUGS (2)
  1. CLINDAMYCIN/DEXTROSE [Suspect]
     Active Substance: CLINDAMYCIN
     Indication: VASCULAR OPERATION
     Route: 042
     Dates: start: 20180721, end: 20180722
  2. CEFEPIME [Suspect]
     Active Substance: CEFEPIME HYDROCHLORIDE
     Indication: VASCULAR OPERATION
     Route: 042
     Dates: start: 20180720, end: 20180722

REACTIONS (1)
  - Angioedema [None]

NARRATIVE: CASE EVENT DATE: 20180722
